FAERS Safety Report 4710414-8 (Version None)
Quarter: 2005Q3

REPORT INFORMATION
  Report Type: 
  Country: None (occurrence: None)
  Receive Date: 20050707
  Receipt Date: 20050629
  Transmission Date: 20060218
  Serious: Yes (Hospitalization)
  Sender: FDA-Public Use
  Company Number: UA-2005-012220

PATIENT
  Sex: Female

DRUGS (1)
  1. MIRENA [Suspect]
     Indication: ADENOMYOSIS
     Dosage: 20  ?G/DAY, CONT, INTRA-UTERINE
     Route: 015
     Dates: start: 20050210

REACTIONS (1)
  - BREAST CANCER FEMALE [None]
